FAERS Safety Report 18320079 (Version 3)
Quarter: 2020Q4

REPORT INFORMATION
  Report Type: Spontaneous
  Country: US (occurrence: US)
  Receive Date: 20200928
  Receipt Date: 20201005
  Transmission Date: 20210113
  Serious: No
  Sender: FDA-Public Use
  Company Number: US-ASTRAZENECA-2020SF23305

PATIENT
  Sex: Male
  Weight: 67.6 kg

DRUGS (1)
  1. LOKELMA [Suspect]
     Active Substance: SODIUM ZIRCONIUM CYCLOSILICATE
     Indication: ILL-DEFINED DISORDER
     Route: 048
     Dates: start: 2019

REACTIONS (5)
  - Peripheral swelling [Unknown]
  - Joint swelling [Unknown]
  - Product taste abnormal [Unknown]
  - Intentional product misuse [Unknown]
  - Muscle spasms [Unknown]
